FAERS Safety Report 8060110-7 (Version None)
Quarter: 2012Q1

REPORT INFORMATION
  Report Type: 
  Country: None (occurrence: None)
  Receive Date: 20120112
  Receipt Date: 20120109
  Transmission Date: 20120608
  Serious: Yes (Hospitalization)
  Sender: FDA-Public Use
  Company Number: 2012SP000544

PATIENT
  Sex: Female

DRUGS (3)
  1. VICTRELIS [Suspect]
     Indication: HEPATITIS C
     Dosage: 800 MG, TID, PO
     Route: 048
     Dates: start: 20110630, end: 20111201
  2. RIBAVIRIN [Suspect]
     Indication: HEPATITIS C
     Dosage: BID
     Dates: start: 20110603, end: 20111201
  3. PEG-INTRON [Suspect]
     Indication: HEPATITIS C
     Dosage: 120 MCG, QW, SC
     Route: 058
     Dates: start: 20110602, end: 20111201

REACTIONS (5)
  - CONVULSION [None]
  - MENTAL STATUS CHANGES [None]
  - STARING [None]
  - CONFUSIONAL STATE [None]
  - ABNORMAL BEHAVIOUR [None]
